FAERS Safety Report 26122593 (Version 1)
Quarter: 2025Q4

REPORT INFORMATION
  Report Type: Spontaneous
  Country: EU (occurrence: EU)
  Receive Date: 20251204
  Receipt Date: 20251204
  Transmission Date: 20260117
  Serious: Yes (Hospitalization)
  Sender: SANOFI AVENTIS
  Company Number: None

PATIENT
  Age: 91 Year
  Sex: Female

DRUGS (3)
  1. ZOLPIDEM TARTRATE [Suspect]
     Active Substance: ZOLPIDEM TARTRATE
     Indication: Insomnia
     Dosage: 1 DF, QD
     Route: 048
     Dates: start: 20250601, end: 20250607
  2. WARFARIN SODIUM [Suspect]
     Active Substance: WARFARIN SODIUM
     Indication: Mitral valve disease
     Dosage: 4 MG, QD
     Route: 048
     Dates: end: 20250607
  3. ASPIRIN [Suspect]
     Active Substance: ASPIRIN
     Indication: Mitral valve disease
     Dosage: 1 DF, QD
     Route: 048
     Dates: end: 20250607

REACTIONS (2)
  - Fall [Recovered/Resolved]
  - Haematoma [Recovered/Resolved]

NARRATIVE: CASE EVENT DATE: 20250607
